FAERS Safety Report 6727275-8 (Version None)
Quarter: 2010Q2

REPORT INFORMATION
  Report Type: 
  Country: None (occurrence: None)
  Receive Date: 20100517
  Receipt Date: 20100507
  Transmission Date: 20101027
  Serious: Yes (Death)
  Sender: FDA-Public Use
  Company Number: US-JNJFOC-20100503926

PATIENT
  Age: 61 Year
  Sex: Male

DRUGS (3)
  1. TOPAMAX [Suspect]
     Indication: TRIGEMINAL NEURALGIA
     Route: 048
  2. NEURONTIN [Suspect]
     Indication: TRIGEMINAL NEURALGIA
     Route: 065
  3. ZONEGRAN [Suspect]
     Indication: TRIGEMINAL NEURALGIA
     Route: 065

REACTIONS (1)
  - COMPLETED SUICIDE [None]
